FAERS Safety Report 4298417-1 (Version None)
Quarter: 2004Q1

REPORT INFORMATION
  Report Type: 
  Country: None (occurrence: None)
  Receive Date: 20040218
  Receipt Date: 20030627
  Transmission Date: 20041129
  Serious: Yes (Other)
  Sender: FDA-Public Use
  Company Number: US-BRISTOL-MYERS SQUIBB COMPANY-12314191

PATIENT
  Sex: Female

DRUGS (16)
  1. STADOL [Suspect]
     Indication: MIGRAINE
     Route: 045
  2. CLONIDINE [Concomitant]
  3. LORTAB [Concomitant]
  4. ALPRAZOLAM [Concomitant]
  5. FIORINAL W/CODEINE NO 3 [Concomitant]
  6. LORCET-HD [Concomitant]
  7. PERCOCET [Concomitant]
  8. AMBIEN [Concomitant]
  9. TYLOX [Concomitant]
  10. ACETAMINOPHEN W/ PROPOXYPHENE HCL [Concomitant]
  11. XANAX [Concomitant]
  12. BUMEX [Concomitant]
  13. PROZAC [Concomitant]
  14. VALIUM [Concomitant]
  15. FLEXERIL [Concomitant]
  16. DEPAKOTE [Concomitant]

REACTIONS (1)
  - DEPENDENCE [None]
